FAERS Safety Report 12277038 (Version 2)
Quarter: 2016Q2

REPORT INFORMATION
  Report Type: Spontaneous
  Country: US (occurrence: US)
  Receive Date: 20160418
  Receipt Date: 20160419
  Transmission Date: 20160815
  Serious: Yes (Hospitalization, Other)
  Sender: FDA-Public Use
  Company Number: US-CIPLA LTD.-2016US03764

PATIENT

DRUGS (46)
  1. TOPIRAMATE. [Suspect]
     Active Substance: TOPIRAMATE
     Indication: MIGRAINE
     Dosage: 100 MG BY MOUTH AT BEDTIME
     Route: 048
  2. TOPIRAMATE. [Interacting]
     Active Substance: TOPIRAMATE
     Dosage: DAY 2
     Route: 048
  3. TOPIRAMATE. [Interacting]
     Active Substance: TOPIRAMATE
     Dosage: DAY 8
  4. TOPIRAMATE. [Interacting]
     Active Substance: TOPIRAMATE
     Dosage: DAY 13
  5. TOPIRAMATE. [Interacting]
     Active Substance: TOPIRAMATE
     Dosage: DAY 14-19
  6. VALPROIC ACID. [Interacting]
     Active Substance: VALPROIC ACID
     Dosage: DAY 2; 750 MG IN THE EVENING
     Route: 042
  7. VALPROIC ACID. [Interacting]
     Active Substance: VALPROIC ACID
     Dosage: DAY 3
     Route: 042
  8. VALPROIC ACID. [Interacting]
     Active Substance: VALPROIC ACID
     Dosage: DAY 7; 500 MG IN THE EVENING
  9. METHADONE [Concomitant]
     Active Substance: METHADONE HYDROCHLORIDE
     Dosage: 10 MG, BID
     Route: 048
  10. TOPIRAMATE. [Interacting]
     Active Substance: TOPIRAMATE
     Dosage: DAY 3
     Route: 048
  11. TOPIRAMATE. [Interacting]
     Active Substance: TOPIRAMATE
     Dosage: DAY 12
  12. RABEPRAZOLE [Concomitant]
     Active Substance: RABEPRAZOLE
     Dosage: 20 MG BY MOUTH DAILY
     Route: 048
  13. TOPIRAMATE. [Interacting]
     Active Substance: TOPIRAMATE
     Dosage: DAY 1
     Route: 048
  14. TOPIRAMATE. [Interacting]
     Active Substance: TOPIRAMATE
     Dosage: DAY 5
     Route: 048
  15. TOPIRAMATE. [Interacting]
     Active Substance: TOPIRAMATE
     Dosage: DAY 11;  IN THE MORNING
  16. VALPROIC ACID. [Interacting]
     Active Substance: VALPROIC ACID
     Dosage: DAY 7; 750 MG IN THE MORNING
  17. VALPROIC ACID. [Interacting]
     Active Substance: VALPROIC ACID
     Dosage: DAY 8
  18. VALPROIC ACID. [Interacting]
     Active Substance: VALPROIC ACID
     Dosage: DAY 11
  19. VALPROIC ACID. [Interacting]
     Active Substance: VALPROIC ACID
     Dosage: DAY 12
  20. VALPROIC ACID. [Interacting]
     Active Substance: VALPROIC ACID
     Dosage: DAY 20
  21. TOPIRAMATE. [Interacting]
     Active Substance: TOPIRAMATE
     Dosage: DAY 10
  22. VALPROIC ACID. [Interacting]
     Active Substance: VALPROIC ACID
     Dosage: DAY 10
  23. LEVETIRACETAM. [Concomitant]
     Active Substance: LEVETIRACETAM
     Indication: PAIN
     Dosage: 1500 MG, BID
     Route: 048
  24. TOPIRAMATE. [Interacting]
     Active Substance: TOPIRAMATE
     Dosage: DAY 11;  100 MG IN THE EVENING
  25. VALPROIC ACID. [Interacting]
     Active Substance: VALPROIC ACID
     Dosage: 750 MG, EVERY 8 HOURS
     Route: 042
  26. VALPROIC ACID. [Interacting]
     Active Substance: VALPROIC ACID
     Dosage: DAY 4
     Route: 042
  27. VALPROIC ACID. [Interacting]
     Active Substance: VALPROIC ACID
     Dosage: DAY 5
  28. VALPROIC ACID. [Interacting]
     Active Substance: VALPROIC ACID
     Dosage: DAY 9
  29. FLUTICASONE/SALMETEROL [Concomitant]
     Active Substance: FLUTICASONE PROPIONATE\SALMETEROL XINAFOATE
     Dosage: 250 MG/50 MCG 1 PUFF INHALED TWICE DAILY
  30. HYDROMORPHONE [Concomitant]
     Active Substance: HYDROMORPHONE
     Dosage: 1 TO 2 TABLETS BY MOUTH EVERY 6 HOURS AS NEEDED
     Route: 048
  31. TRIMETHOBENZAMIDE [Concomitant]
     Active Substance: TRIMETHOBENZAMIDE
     Indication: NAUSEA
     Dosage: 250 MG, BY MOUTH EVERY 8 HOURS AS NEEDED
     Route: 048
  32. TOPIRAMATE. [Interacting]
     Active Substance: TOPIRAMATE
     Dosage: DAY 4
     Route: 048
  33. TOPIRAMATE. [Interacting]
     Active Substance: TOPIRAMATE
     Dosage: DAY 7
  34. TOPIRAMATE. [Interacting]
     Active Substance: TOPIRAMATE
     Dosage: DAY 9
  35. VALPROIC ACID. [Interacting]
     Active Substance: VALPROIC ACID
     Dosage: DAY 2; 1500 MG IN THE MORNING
     Route: 042
  36. VALPROIC ACID. [Interacting]
     Active Substance: VALPROIC ACID
     Dosage: DAY 6
  37. DULOXETINE. [Concomitant]
     Active Substance: DULOXETINE
     Dosage: 60 MG BY MOUTH DAILY
     Route: 048
  38. ZOLMITRIPTAN. [Concomitant]
     Active Substance: ZOLMITRIPTAN
     Indication: MIGRAINE
     Dosage: NASAL SPRAY 5 MG NASALLY
     Route: 045
  39. VALPROIC ACID. [Interacting]
     Active Substance: VALPROIC ACID
     Dosage: DAY 14-19
  40. TRAZODONE [Concomitant]
     Active Substance: TRAZODONE HYDROCHLORIDE
     Indication: MIGRAINE
     Dosage: 100 MG BY MOUTH AT BEDTIME
     Route: 048
  41. TOPIRAMATE. [Interacting]
     Active Substance: TOPIRAMATE
     Dosage: DAY 6
     Route: 048
  42. VALPROIC ACID. [Interacting]
     Active Substance: VALPROIC ACID
     Dosage: DAY 1; NO DOSE
     Route: 042
  43. VALPROIC ACID. [Interacting]
     Active Substance: VALPROIC ACID
     Dosage: DAY 13
  44. ALBUTEROL. [Concomitant]
     Active Substance: ALBUTEROL
     Dosage: 2 PUFFS BY MOUTH 4 TIMES A DAY AS NEEDED
  45. TEMAZPAM [Concomitant]
     Dosage: 30 MG, BY MOUTH AT BEDTIME
     Route: 048
  46. ELETRIPTAN [Concomitant]
     Active Substance: ELETRIPTAN
     Indication: MIGRAINE
     Dosage: 40 MG, BY MOUTH AS NEEDED
     Route: 048

REACTIONS (6)
  - Hypoxic-ischaemic encephalopathy [Unknown]
  - Drug interaction [Unknown]
  - Unresponsive to stimuli [Unknown]
  - Hyperammonaemia [Unknown]
  - Cardiac arrest [Unknown]
  - Myoclonic epilepsy [Unknown]
